FAERS Safety Report 14082117 (Version 2)
Quarter: 2017Q4

REPORT INFORMATION
  Report Type: Spontaneous
  Country: CO (occurrence: CO)
  Receive Date: 20171013
  Receipt Date: 20171113
  Transmission Date: 20180321
  Serious: Yes (Disabling)
  Sender: FDA-Public Use
  Company Number: CO-HIKMA PHARMACEUTICALS CO. LTD-2017CO013496

PATIENT

DRUGS (1)
  1. REMSIMA [Suspect]
     Active Substance: INFLIXIMAB
     Indication: RHEUMATOID ARTHRITIS
     Dosage: 300 MG (3 VIALS), (6 WEEKS)
     Route: 042
     Dates: start: 20170711, end: 20170711

REACTIONS (1)
  - Treatment failure [Recovering/Resolving]

NARRATIVE: CASE EVENT DATE: 201709
